FAERS Safety Report 6709571-3 (Version None)
Quarter: 2010Q2

REPORT INFORMATION
  Report Type: 
  Country: None (occurrence: None)
  Receive Date: 20100504
  Receipt Date: 20100429
  Transmission Date: 20101027
  Serious: Yes (Other)
  Sender: FDA-Public Use
  Company Number: US-PFIZER INC-2010055048

PATIENT
  Sex: Female

DRUGS (1)
  1. CELEBREX [Suspect]
     Indication: PAIN
     Dosage: UNK
     Dates: start: 20100401, end: 20100401

REACTIONS (2)
  - BURNING SENSATION [None]
  - PARAESTHESIA [None]
